FAERS Safety Report 14992748 (Version 1)
Quarter: 2018Q2

REPORT INFORMATION
  Report Type: Spontaneous
  Country: GB (occurrence: GB)
  Receive Date: 20180609
  Receipt Date: 20180609
  Transmission Date: 20180711
  Serious: Yes (Other)
  Sender: FDA-Public Use
  Company Number: GB-TEVA-2018-GB-904463

PATIENT
  Age: 1 Year
  Sex: Male
  Weight: 9 kg

DRUGS (2)
  1. NITROFURANTOIN. [Suspect]
     Active Substance: NITROFURANTOIN
     Route: 065
     Dates: start: 20180308
  2. CEFALEXIN [Concomitant]
     Active Substance: CEPHALEXIN
     Dosage: 20 ML DAILY;
     Dates: start: 20170815

REACTIONS (3)
  - Angioedema [Recovered/Resolved]
  - Lip haemorrhage [Unknown]
  - Lip swelling [Unknown]

NARRATIVE: CASE EVENT DATE: 20180308
